FAERS Safety Report 12038963 (Version 2)
Quarter: 2016Q1

REPORT INFORMATION
  Report Type: Spontaneous
  Country: JP (occurrence: JP)
  Receive Date: 20160208
  Receipt Date: 20160303
  Transmission Date: 20160526
  Serious: Yes (Other)
  Sender: FDA-Public Use
  Company Number: JP-TEVA-633279ISR

PATIENT
  Age: 68 Year
  Sex: Female

DRUGS (5)
  1. CISPLATIN. [Suspect]
     Active Substance: CISPLATIN
     Indication: OESOPHAGEAL SQUAMOUS CELL CARCINOMA STAGE III
     Dosage: 7 MG/M2, DAYS 1 TO 20
     Route: 065
  2. DOCETAXEL. [Suspect]
     Active Substance: DOCETAXEL
     Indication: OESOPHAGEAL SQUAMOUS CELL CARCINOMA STAGE III
     Dosage: 30 MG/M2, DAYS 1 AND 11
     Route: 065
  3. DEXAMETHASONE. [Suspect]
     Active Substance: DEXAMETHASONE
     Indication: NAUSEA
  4. DEXAMETHASONE. [Suspect]
     Active Substance: DEXAMETHASONE
     Indication: DECREASED APPETITE
     Dosage: 3.3 MILLIGRAM DAILY;
     Route: 065
  5. FLUOROURACIL. [Suspect]
     Active Substance: FLUOROURACIL
     Indication: OESOPHAGEAL SQUAMOUS CELL CARCINOMA STAGE III
     Dosage: 350 MG/M2, DAYS 1 TO 20
     Route: 065

REACTIONS (5)
  - Decreased appetite [Unknown]
  - Nausea [Unknown]
  - Lymphopenia [Unknown]
  - Cytomegalovirus infection [Recovered/Resolved]
  - Weight decreased [Unknown]
